FAERS Safety Report 17142555 (Version 1)
Quarter: 2019Q4

REPORT INFORMATION
  Report Type: Report from Study
  Country: US (occurrence: US)
  Receive Date: 20191211
  Receipt Date: 20191211
  Transmission Date: 20200122
  Serious: Yes (Other)
  Sender: FDA-Public Use
  Company Number: US-ACTELION PHARMACEUTICALS LTD.-A-NJ2019-199089

PATIENT
  Sex: Male

DRUGS (5)
  1. OPSUMIT [Suspect]
     Active Substance: MACITENTAN
     Indication: PULMONARY HYPERTENSION
     Dosage: 10 MG, QD
     Route: 048
     Dates: start: 201909
  2. THERA-M [Concomitant]
  3. SILDENAFIL. [Concomitant]
     Active Substance: SILDENAFIL
  4. MOTRIN [Concomitant]
     Active Substance: IBUPROFEN
  5. MUPIROCIN. [Concomitant]
     Active Substance: MUPIROCIN

REACTIONS (5)
  - Treatment noncompliance [Unknown]
  - Dyspnoea [Unknown]
  - Chest pain [Unknown]
  - Pain [Recovering/Resolving]
  - Cellulitis [Unknown]
